FAERS Safety Report 8955948 (Version 1)
Quarter: 2012Q4

REPORT INFORMATION
  Report Type: 
  Country: FR (occurrence: FR)
  Receive Date: 20121210
  Receipt Date: 20121210
  Transmission Date: 20130627
  Serious: Yes (Hospitalization)
  Sender: FDA-Public Use
  Company Number: PHHY2012FR112629

PATIENT
  Age: 93 Year
  Sex: Female

DRUGS (7)
  1. ANAFRANIL [Suspect]
     Indication: DEPRESSION
     Dosage: 12.5 mg, QD
     Route: 042
     Dates: start: 20121018, end: 20121019
  2. ANAFRANIL [Suspect]
     Dosage: 25 mg, QD
     Route: 042
     Dates: start: 20121019, end: 20121024
  3. CLOMIPRAMINE [Suspect]
     Indication: DEPRESSION
     Dosage: 75 mg, QD
     Route: 048
     Dates: start: 20121025, end: 20121107
  4. BISOCE [Concomitant]
  5. AMLODIPINE [Concomitant]
  6. TRIATEC [Concomitant]
  7. KEPPRA [Concomitant]

REACTIONS (1)
  - Hyponatraemia [Recovered/Resolved]
